FAERS Safety Report 9300529 (Version 2)
Quarter: 2013Q2

REPORT INFORMATION
  Report Type: Spontaneous
  Country: US (occurrence: US)
  Receive Date: 20130521
  Receipt Date: 20130610
  Transmission Date: 20140414
  Serious: Yes (Death, Other)
  Sender: FDA-Public Use
  Company Number: US-INCYTE CORPORATION-2013IN000750

PATIENT
  Age: 83 Year
  Sex: Male
  Weight: 81.09 kg

DRUGS (11)
  1. JAKAFI [Suspect]
     Indication: MYELOFIBROSIS
     Dosage: 15 MG, BID
     Route: 048
     Dates: start: 20130327, end: 20130403
  2. JAKAFI [Suspect]
     Dosage: 15 MG, QD
     Route: 048
     Dates: start: 20130403, end: 20130408
  3. ALLOPURINOL [Concomitant]
     Dosage: 300 MG, QD
  4. VALIUM [Concomitant]
     Dosage: 10 MG, SINGLE, 30 MINS. BEFORE BONE MARROW
     Route: 048
  5. METOPROLOL TARTRATE [Concomitant]
     Dosage: 50 MG, BID
     Route: 048
  6. DILANTIN [Concomitant]
     Dosage: 100 MG, UNK
  7. LEVOTHYROXINE SODIUM [Concomitant]
     Dosage: 75 MCG, QD
     Route: 048
  8. APRISO [Concomitant]
     Dosage: 0.375 G, QID
  9. PANTOPRAZOLE SODIUM [Concomitant]
     Dosage: 40 MG, QD
     Route: 048
  10. ASPIRIN [Concomitant]
     Dosage: 81 MG, QD
     Route: 048
  11. HYDREA [Concomitant]
     Indication: MYELOFIBROSIS
     Dosage: 500 MG, QOD

REACTIONS (7)
  - Death [Fatal]
  - Cardiac failure congestive [Unknown]
  - Platelet count decreased [Not Recovered/Not Resolved]
  - Abdominal distension [Not Recovered/Not Resolved]
  - Contusion [Not Recovered/Not Resolved]
  - Hypokalaemia [Unknown]
  - Rhonchi [Unknown]
